FAERS Safety Report 23331767 (Version 1)
Quarter: 2023Q4

REPORT INFORMATION
  Report Type: Spontaneous
  Country: None (occurrence: US)
  Receive Date: 20231222
  Receipt Date: 20231222
  Transmission Date: 20240109
  Serious: No
  Sender: FDA-Public Use
  Company Number: US-Intersect Ent, Inc.-2149643

PATIENT
  Age: 51 Year
  Sex: Male

DRUGS (1)
  1. SINUVA [Suspect]
     Active Substance: MOMETASONE FUROATE
     Indication: Nasal polyps
     Route: 006
     Dates: start: 20230706

REACTIONS (4)
  - Rhinorrhoea [Unknown]
  - Upper-airway cough syndrome [Unknown]
  - Nasal crusting [Unknown]
  - Facial discomfort [Unknown]

NARRATIVE: CASE EVENT DATE: 20230913
